FAERS Safety Report 5162504-6 (Version None)
Quarter: 2006Q4

REPORT INFORMATION
  Report Type: 
  Country: None (occurrence: None)
  Receive Date: 20061127
  Receipt Date: 20061127
  Transmission Date: 20070319
  Serious: Yes (Other)
  Sender: FDA-Public Use
  Company Number: None

PATIENT
  Age: 56 Year
  Sex: Male
  Weight: 208 kg

DRUGS (1)
  1. VANCOMYCIN [Suspect]
     Dosage: 1500 MG IV X 1
     Route: 042
     Dates: start: 20060925

REACTIONS (3)
  - HYPERTENSION [None]
  - INFUSION RELATED REACTION [None]
  - RASH [None]
